FAERS Safety Report 22214840 (Version 10)
Quarter: 2024Q1

REPORT INFORMATION
  Report Type: Report from Study
  Country: US (occurrence: US)
  Receive Date: 20230415
  Receipt Date: 20240125
  Transmission Date: 20240410
  Serious: Yes (Other)
  Sender: FDA-Public Use
  Company Number: US-002147023-NVSC2023US086675

PATIENT
  Age: 44 Year
  Sex: Female

DRUGS (12)
  1. KESIMPTA [Suspect]
     Active Substance: OFATUMUMAB
     Indication: Multiple sclerosis
     Dosage: 20 MG, QMO (FIRST DOSE)
     Route: 058
     Dates: start: 20230404
  2. KESIMPTA [Suspect]
     Active Substance: OFATUMUMAB
     Dosage: 20 MG, QMO (SECOND DOSE)
     Route: 058
  3. KESIMPTA [Suspect]
     Active Substance: OFATUMUMAB
     Dosage: 20 MG, QMO (FIRST MAINTENANCE DOSE)
     Route: 058
  4. KESIMPTA [Suspect]
     Active Substance: OFATUMUMAB
     Dosage: 20 MG, QMO (SECOND MAINTENANCE DOSE)
     Route: 058
  5. MELATONIN [Concomitant]
     Active Substance: MELATONIN
     Indication: Product used for unknown indication
     Dosage: 5 DOSAGE FORM, QHS (AT BEDTIME)
     Route: 048
  6. PROBIOTICS NOS [Concomitant]
     Active Substance: PROBIOTICS NOS
     Indication: Product used for unknown indication
     Dosage: 1 DOSAGE FORM, QD (EVERY MORNING) (10 BILLION CELL)
     Route: 048
  7. VITAMIN D3 [Concomitant]
     Active Substance: CHOLECALCIFEROL
     Indication: Product used for unknown indication
     Dosage: 1 DOSAGE FORM, QD (EVERY MORNING) (1000 UNIT)
     Route: 048
  8. VITAMIN B12 [Concomitant]
     Active Substance: CYANOCOBALAMIN
     Indication: Product used for unknown indication
     Dosage: 5000 UG, QD (EVERY MORNING)
     Route: 048
  9. MAGNESIUM OXIDE [Concomitant]
     Active Substance: MAGNESIUM OXIDE
     Indication: Product used for unknown indication
     Dosage: 1 DOSAGE FORM, QD (EVERY MORNING)
     Route: 048
  10. ADDERALL [Concomitant]
     Active Substance: AMPHETAMINE ASPARTATE\AMPHETAMINE SULFATE\DEXTROAMPHETAMINE SACCHARATE\DEXTROAMPHETAMINE SULFATE
     Indication: Product used for unknown indication
     Dosage: 1 DOSAGE FORM, BID
     Route: 048
  11. FISH OIL [Concomitant]
     Active Substance: FISH OIL
     Indication: Product used for unknown indication
     Dosage: UNK
     Route: 065
  12. VALIUM [Concomitant]
     Active Substance: DIAZEPAM
     Indication: Product used for unknown indication
     Dosage: 2 DOSAGE FORM (TAKE 1-2 TABLET SINGLE DOSE/ 60 MINUTES PRIOR TO MRI)
     Route: 048

REACTIONS (25)
  - Multiple sclerosis [Recovering/Resolving]
  - Musculoskeletal disorder [Unknown]
  - Pain [Recovering/Resolving]
  - Insomnia [Recovered/Resolved]
  - Fatigue [Unknown]
  - Muscular weakness [Unknown]
  - Muscle spasms [Unknown]
  - Memory impairment [Unknown]
  - Balance disorder [Unknown]
  - Dysphagia [Unknown]
  - Dysarthria [Unknown]
  - Abdominal discomfort [Unknown]
  - Anxiety [Unknown]
  - Nausea [Recovered/Resolved]
  - Chills [Recovering/Resolving]
  - Dizziness [Unknown]
  - Lhermitte^s sign [Unknown]
  - Nerve compression [Unknown]
  - Headache [Unknown]
  - Neuralgia [Unknown]
  - Constipation [Unknown]
  - Arthralgia [Unknown]
  - Ear pain [Unknown]
  - Stress [Unknown]
  - Weight increased [Unknown]

NARRATIVE: CASE EVENT DATE: 20230404
